FAERS Safety Report 17017755 (Version 7)
Quarter: 2020Q3

REPORT INFORMATION
  Report Type: Spontaneous
  Country: ES (occurrence: ES)
  Receive Date: 20191111
  Receipt Date: 20200904
  Transmission Date: 20201102
  Serious: Yes (Hospitalization, Other)
  Sender: FDA-Public Use
  Company Number: ES-MYLANLABS-2019M1083257

PATIENT
  Age: 74 Year
  Sex: Male

DRUGS (2)
  1. OLMESARTAN MEDOXOMIL. [Suspect]
     Active Substance: OLMESARTAN MEDOXOMIL
     Indication: HYPERTENSION
     Dosage: 40 MG, QD
     Route: 048
  2. OLMESARTAN MEDOXOMIL. [Suspect]
     Active Substance: OLMESARTAN MEDOXOMIL
     Dosage: 40 MILLIGRAM, UNK
     Route: 065

REACTIONS (16)
  - Nausea [Recovered/Resolved]
  - Diarrhoea [Recovered/Resolved]
  - Vomiting [Recovered/Resolved]
  - Gastrointestinal disorder [Recovering/Resolving]
  - Weight decreased [Unknown]
  - Enteritis [Recovering/Resolving]
  - Hypomagnesaemia [Recovering/Resolving]
  - Tremor [Unknown]
  - Malabsorption [Recovering/Resolving]
  - Erosive duodenitis [Recovering/Resolving]
  - Dizziness [Recovered/Resolved]
  - Balance disorder [Recovered/Resolved]
  - Sprue-like enteropathy [Recovered/Resolved]
  - Hypocalcaemia [Recovering/Resolving]
  - Abdominal pain upper [Recovered/Resolved]
  - Gait disturbance [Unknown]
